FAERS Safety Report 24676035 (Version 1)
Quarter: 2024Q4

REPORT INFORMATION
  Report Type: Spontaneous
  Country: CN (occurrence: CN)
  Receive Date: 20241128
  Receipt Date: 20241128
  Transmission Date: 20250115
  Serious: Yes (Other)
  Sender: JOHNSON AND JOHNSON
  Company Number: CN-JNJFOC-20241151337

PATIENT
  Sex: Female

DRUGS (4)
  1. RISPERDAL [Suspect]
     Active Substance: RISPERIDONE
     Indication: Schizophrenia
     Route: 048
  2. RISPERDAL [Suspect]
     Active Substance: RISPERIDONE
     Route: 048
  3. RISPERDAL [Suspect]
     Active Substance: RISPERIDONE
     Route: 048
  4. CHLORPROMAZINE [Concomitant]
     Active Substance: CHLORPROMAZINE

REACTIONS (13)
  - Autonomic neuropathy [Unknown]
  - Tachycardia [Unknown]
  - Toxicity to various agents [Unknown]
  - Laboratory test abnormal [Unknown]
  - Nervous system disorder [Unknown]
  - Cardiovascular disorder [Unknown]
  - Adverse drug reaction [Unknown]
  - Agitation [Unknown]
  - Blood glucose increased [Unknown]
  - Nausea [Unknown]
  - Weight increased [Unknown]
  - Vomiting [Unknown]
  - Off label use [Unknown]
